FAERS Safety Report 22381658 (Version 2)
Quarter: 2023Q2

REPORT INFORMATION
  Report Type: Report from Study
  Country: US (occurrence: US)
  Receive Date: 20230530
  Receipt Date: 20230601
  Transmission Date: 20230722
  Serious: No
  Sender: FDA-Public Use
  Company Number: US-002147023-NVSC2023US122225

PATIENT
  Sex: Male

DRUGS (2)
  1. PREDNISONE [Suspect]
     Active Substance: PREDNISONE
     Indication: Psoriasis
     Dosage: UNK
     Route: 065
  2. HYDROCORTISONE [Suspect]
     Active Substance: HYDROCORTISONE
     Indication: Psoriasis
     Dosage: UNK
     Route: 065

REACTIONS (5)
  - Psoriasis [Unknown]
  - Arthralgia [Unknown]
  - Depression [Unknown]
  - Anxiety [Unknown]
  - Drug ineffective [Unknown]
